FAERS Safety Report 6479643-X (Version None)
Quarter: 2009Q4

REPORT INFORMATION
  Report Type: 
  Country: None (occurrence: None)
  Receive Date: 20091204
  Receipt Date: 20091204
  Transmission Date: 20100525
  Serious: Yes (Hospitalization)
  Sender: FDA-Public Use
  Company Number: None

PATIENT
  Age: 57 Year
  Sex: Male
  Weight: 71.6683 kg

DRUGS (19)
  1. PANITUMUMAB [Suspect]
     Indication: COLON CANCER METASTATIC
     Dosage: 6MG/KG Q14 DAY IV BOLUS
     Route: 040
  2. ALDACTONE [Concomitant]
  3. ATIVAN [Concomitant]
  4. COLACE [Concomitant]
  5. COMPAZINE [Concomitant]
  6. CRDRAN [Concomitant]
  7. DICLOXACILLIN [Concomitant]
  8. FUROSEMIDE [Concomitant]
  9. GABEPENTIN [Concomitant]
  10. IBUPROFEN [Concomitant]
  11. LACTULOSE [Concomitant]
  12. MAGNESIUM OXIDE [Concomitant]
  13. MIRACLE MOUTHWASH [Concomitant]
  14. MS CONTIN [Concomitant]
  15. PEPCID [Concomitant]
  16. PERCOCET [Concomitant]
  17. PYRIDOXINE HCL [Concomitant]
  18. SENNA TABLETS [Concomitant]
  19. TRIAMCINLONE [Concomitant]

REACTIONS (9)
  - ABDOMINAL DISTENSION [None]
  - ABDOMINAL PAIN [None]
  - ASCITES [None]
  - DECREASED APPETITE [None]
  - DYSPNOEA [None]
  - HAEMATOCRIT DECREASED [None]
  - HYPERKALAEMIA [None]
  - MELAENA [None]
  - PLEURAL EFFUSION [None]
